FAERS Safety Report 8233851-6 (Version None)
Quarter: 2012Q1

REPORT INFORMATION
  Report Type: 
  Country: None (occurrence: None)
  Receive Date: 20120326
  Receipt Date: 20120319
  Transmission Date: 20120608
  Serious: Yes (Hospitalization, Other)
  Sender: FDA-Public Use
  Company Number: US-BAYER-201029363NA

PATIENT
  Age: 40 Year
  Sex: Female
  Weight: 77.551 kg

DRUGS (10)
  1. DARVOCET [Concomitant]
  2. VALTREX [Concomitant]
  3. ZANTAC [Concomitant]
  4. DROSPIRENONE AND ETHINYL ESTRADIOL [Suspect]
     Dosage: UNK
     Dates: start: 20080801, end: 20090801
  5. ATIVAN [Concomitant]
  6. YASMIN [Suspect]
     Indication: ORAL CONTRACEPTION
     Dosage: UNK UNK, UNK
     Route: 048
     Dates: start: 20040501, end: 20070701
  7. YASMIN [Suspect]
     Dosage: UNK
     Dates: start: 20060801, end: 20080801
  8. NSAID'S [Concomitant]
  9. SOMA [Concomitant]
  10. XANAX [Concomitant]

REACTIONS (3)
  - GASTROINTESTINAL DISORDER [None]
  - CHOLECYSTITIS CHRONIC [None]
  - CHOLELITHIASIS [None]
